FAERS Safety Report 6884493-6 (Version None)
Quarter: 2010Q3

REPORT INFORMATION
  Report Type: 
  Country: None (occurrence: None)
  Receive Date: 20100729
  Receipt Date: 20070712
  Transmission Date: 20110219
  Serious: Yes (Hospitalization, Disabling)
  Sender: FDA-Public Use
  Company Number: US-PFIZER INC-2007058428

PATIENT
  Sex: Male
  Weight: 106.6 kg

DRUGS (9)
  1. CELEBREX [Suspect]
     Indication: BACK PAIN
     Dates: start: 20010101, end: 20030101
  2. CELEBREX [Suspect]
     Indication: NECK PAIN
  3. IBUPROFEN TABLETS [Concomitant]
  4. ALEVE (CAPLET) [Concomitant]
  5. ACETYLSALICYLIC ACID SRT [Concomitant]
  6. CODEINE [Concomitant]
  7. DARVOCET [Concomitant]
  8. DEMEROL [Concomitant]
  9. MORPHINE [Concomitant]

REACTIONS (1)
  - CEREBROVASCULAR ACCIDENT [None]
